FAERS Safety Report 5846243-1 (Version None)
Quarter: 2008Q3

REPORT INFORMATION
  Report Type: 
  Country: None (occurrence: None)
  Receive Date: 20080813
  Receipt Date: 20080730
  Transmission Date: 20090109
  Serious: Yes (Other)
  Sender: FDA-Public Use
  Company Number: 2008S1000228

PATIENT
  Age: 25 Year
  Sex: Female
  Weight: 60.0109 kg

DRUGS (3)
  1. ACITRETIN [Suspect]
     Indication: PSORIASIS
     Dosage: 30 MG; QD; PO, 25 MG; QOD; PO
     Route: 048
     Dates: start: 20061211, end: 20071224
  2. ACITRETIN [Suspect]
     Indication: PSORIASIS
     Dosage: 30 MG; QD; PO, 25 MG; QOD; PO
     Route: 048
     Dates: start: 20071225
  3. CYPROTERONE/ETHINYLESTRADIOL (NO PREF. NAME) [Suspect]
     Indication: CONTRACEPTION
     Dates: start: 20000101, end: 20080601

REACTIONS (7)
  - ALOPECIA [None]
  - BLOOD CHOLESTEROL INCREASED [None]
  - DIABETES MELLITUS [None]
  - DISEASE RECURRENCE [None]
  - LIP DISORDER [None]
  - PSORIASIS [None]
  - WOUND [None]
